FAERS Safety Report 6307051-0 (Version None)
Quarter: 2009Q3

REPORT INFORMATION
  Report Type: 
  Country: None (occurrence: None)
  Receive Date: 20090812
  Receipt Date: 20090714
  Transmission Date: 20100115
  Serious: Yes (Other)
  Sender: FDA-Public Use
  Company Number: GR-JNJCH-2009011733

PATIENT
  Sex: Female

DRUGS (2)
  1. CETIRIZINE HCL [Suspect]
     Indication: HYPERSENSITIVITY
     Dosage: TEXT:10 MG
     Route: 048
     Dates: start: 20090215, end: 20090225
  2. HYDROCORTISONE [Concomitant]
     Indication: HYPERSENSITIVITY
     Route: 030
     Dates: start: 20090201, end: 20090201

REACTIONS (2)
  - PREGNANCY [None]
  - PREMATURE SEPARATION OF PLACENTA [None]
